FAERS Safety Report 10589684 (Version 1)
Quarter: 2014Q4

REPORT INFORMATION
  Report Type: Spontaneous
  Country: CA (occurrence: CA)
  Receive Date: 20141118
  Receipt Date: 20141118
  Transmission Date: 20150529
  Serious: Yes (Death, Hospitalization, Other)
  Sender: FDA-Public Use
  Company Number: PHHY2014CA149068

PATIENT
  Age: 39 Year
  Sex: Female

DRUGS (9)
  1. ALEMTUZUMAB [Concomitant]
     Active Substance: ALEMTUZUMAB
     Indication: PRODUCT USED FOR UNKNOWN INDICATION
     Route: 065
  2. MYCOPHENOLATE MOFETIL. [Suspect]
     Active Substance: MYCOPHENOLATE MOFETIL
     Indication: IMMUNOSUPPRESSION
     Route: 065
  3. ZANAMIVIR [Suspect]
     Active Substance: ZANAMIVIR
     Indication: INFLUENZA
     Dosage: 10 MG, BID
     Route: 055
  4. OSELTAMIVIR [Suspect]
     Active Substance: OSELTAMIVIR
     Indication: INFLUENZA
     Dosage: 75 MG, BID
     Route: 048
  5. OSELTAMIVIR [Suspect]
     Active Substance: OSELTAMIVIR
     Dosage: 150 MG, BID
     Route: 048
     Dates: start: 20121227
  6. OSELTAMIVIR [Suspect]
     Active Substance: OSELTAMIVIR
     Dosage: 150 MG, BID
     Route: 065
     Dates: start: 20130314
  7. ZANAMIVIR [Suspect]
     Active Substance: ZANAMIVIR
     Indication: PSEUDOMONAS INFECTION
     Dosage: 600 MG, EVERY 12 H
     Route: 042
     Dates: start: 20130110
  8. OSELTAMIVIR [Suspect]
     Active Substance: OSELTAMIVIR
     Dosage: 150 MG, EVERY 12 H
     Route: 048
     Dates: start: 20130124
  9. CICLOSPORIN [Suspect]
     Active Substance: CYCLOSPORINE
     Indication: IMMUNOSUPPRESSION
     Route: 065

REACTIONS (15)
  - Graft versus host disease in gastrointestinal tract [Fatal]
  - Lung infiltration [Fatal]
  - Rhinorrhoea [Fatal]
  - Productive cough [Fatal]
  - General physical health deterioration [Not Recovered/Not Resolved]
  - Dyspnoea [Fatal]
  - Respiratory distress [Fatal]
  - Pseudomonas infection [Fatal]
  - Influenza [Fatal]
  - Cough [Fatal]
  - Drug resistance [Unknown]
  - Graft versus host disease in skin [Fatal]
  - Legionella infection [Fatal]
  - Cytomegalovirus infection [Fatal]
  - Cystitis haemorrhagic [Unknown]

NARRATIVE: CASE EVENT DATE: 201211
